FAERS Safety Report 19471913 (Version 1)
Quarter: 2021Q2

REPORT INFORMATION
  Report Type: Spontaneous
  Country: US (occurrence: US)
  Receive Date: 20210629
  Receipt Date: 20210629
  Transmission Date: 20210717
  Serious: Yes (Hospitalization)
  Sender: FDA-Public Use
  Company Number: None

PATIENT
  Age: 34 Year
  Sex: Female
  Weight: 83 kg

DRUGS (8)
  1. CYCLOPHOSPHAMIDE. [Suspect]
     Active Substance: CYCLOPHOSPHAMIDE
     Dates: end: 20191217
  2. VINCRISTINE SULFATE. [Suspect]
     Active Substance: VINCRISTINE SULFATE
     Dates: end: 20210603
  3. CYTARABINE. [Suspect]
     Active Substance: CYTARABINE
     Dates: end: 20210604
  4. MERCAPTOPURINE. [Suspect]
     Active Substance: MERCAPTOPURINE
     Dates: end: 20210619
  5. METHOTREXATE. [Suspect]
     Active Substance: METHOTREXATE
     Dates: end: 20210620
  6. DOXORUBICIN HYDROCHLORIDE. [Suspect]
     Active Substance: DOXORUBICIN HYDROCHLORIDE
     Dates: end: 20200122
  7. DEXAMETHASONE. [Suspect]
     Active Substance: DEXAMETHASONE
     Dates: end: 20200128
  8. ONCASPAR [Suspect]
     Active Substance: PEGASPARGASE
     Dates: end: 20200227

REACTIONS (10)
  - Palmar-plantar erythrodysaesthesia syndrome [None]
  - Oropharyngeal pain [None]
  - Stomatitis [None]
  - Haematocrit decreased [None]
  - White blood cell count decreased [None]
  - Mucosal inflammation [None]
  - Tonsillitis [None]
  - Epistaxis [None]
  - Nausea [None]
  - Haemoglobin decreased [None]

NARRATIVE: CASE EVENT DATE: 20210618
